FAERS Safety Report 23817942 (Version 4)
Quarter: 2024Q2

REPORT INFORMATION
  Report Type: Report from Study
  Country: IT (occurrence: IT)
  Receive Date: 20240506
  Receipt Date: 20240618
  Transmission Date: 20240716
  Serious: Yes (Other)
  Sender: FDA-Public Use
  Company Number: IT-JNJFOC-20240488552

PATIENT
  Age: 67 Year
  Sex: Female

DRUGS (4)
  1. DARATUMUMAB [Suspect]
     Active Substance: DARATUMUMAB
     Indication: Plasma cell myeloma
     Dosage: 15
     Route: 065
     Dates: start: 20240313, end: 20240313
  2. DARATUMUMAB [Suspect]
     Active Substance: DARATUMUMAB
     Dosage: 15
     Route: 065
     Dates: start: 20240410, end: 20240410
  3. DARATUMUMAB [Suspect]
     Active Substance: DARATUMUMAB
     Dosage: 15
     Route: 065
     Dates: start: 20240221
  4. DARATUMUMAB [Suspect]
     Active Substance: DARATUMUMAB
     Dosage: 15
     Route: 065
     Dates: start: 20240228

REACTIONS (3)
  - Hypogammaglobulinaemia [Not Recovered/Not Resolved]
  - Oropharyngeal pain [Recovered/Resolved]
  - COVID-19 [Recovered/Resolved]

NARRATIVE: CASE EVENT DATE: 20240327
